FAERS Safety Report 8767454 (Version 1)
Quarter: 2012Q4

REPORT INFORMATION
  Report Type: 
  Country: FR (occurrence: FR)
  Receive Date: 20120904
  Receipt Date: 20120904
  Transmission Date: 20130627
  Serious: Yes (Death, Life-Threatening, Hospitalization)
  Sender: FDA-Public Use
  Company Number: FR-BRISTOL-MYERS SQUIBB COMPANY-16886749

PATIENT
  Age: 67 Year
  Sex: Female

DRUGS (1)
  1. SPRYCEL (CML) TABS 50 MG [Suspect]
     Indication: CHRONIC MYELOID LEUKAEMIA
     Dosage: Unk-Nov2010
Jun12-28Jul2012
     Route: 048

REACTIONS (6)
  - Hypoxic-ischaemic encephalopathy [Fatal]
  - Hypertrophic cardiomyopathy [Unknown]
  - Atrial fibrillation [Unknown]
  - Systolic dysfunction [Unknown]
  - Pulmonary arterial hypertension [Unknown]
  - Pleural effusion [Unknown]
